FAERS Safety Report 17293484 (Version 1)
Quarter: 2020Q1

REPORT INFORMATION
  Report Type: Spontaneous
  Country: FR (occurrence: FR)
  Receive Date: 20200121
  Receipt Date: 20200121
  Transmission Date: 20200409
  Serious: Yes (Hospitalization)
  Sender: FDA-Public Use
  Company Number: NVSC2020FR008224

PATIENT
  Age: 61 Year
  Sex: Male
  Weight: 94 kg

DRUGS (25)
  1. LOVENOX [Suspect]
     Active Substance: ENOXAPARIN SODIUM
     Indication: THROMBOSIS PROPHYLAXIS
     Dosage: 4000 IU, QD (0-0-1)
     Route: 058
     Dates: start: 20191008, end: 20191014
  2. ALIMTA [Suspect]
     Active Substance: PEMETREXED DISODIUM
     Indication: LUNG ADENOCARCINOMA
     Dosage: 1000 MG, CYCLIC
     Route: 042
     Dates: start: 20190916, end: 20191007
  3. FLAGYL [Suspect]
     Active Substance: METRONIDAZOLE\METRONIDAZOLE HYDROCHLORIDE
     Indication: PNEUMONIA
     Dosage: 1500 MG, QD (1-1-1)
     Route: 048
     Dates: start: 20191008, end: 20191009
  4. LEVETIRACETAM MYLAN [Concomitant]
     Active Substance: LEVETIRACETAM
     Indication: INTRACRANIAL PRESSURE INCREASED
     Dosage: 1000 MG, QD
     Route: 048
     Dates: start: 20190816, end: 20191008
  5. JANUVIA [Concomitant]
     Active Substance: SITAGLIPTIN PHOSPHATE
     Indication: TYPE 2 DIABETES MELLITUS
     Dosage: 1 DF, QD(1-0-0)
     Route: 048
     Dates: end: 20191008
  6. ZOPHREN [Suspect]
     Active Substance: ONDANSETRON
     Indication: PREMEDICATION
     Dosage: 8 MG, CYCLIC
     Route: 042
     Dates: start: 20190916, end: 20191007
  7. ATORVASTATIN ARROW [Concomitant]
     Active Substance: ATORVASTATIN CALCIUM
     Indication: DYSLIPIDAEMIA
     Dosage: 10 MG, QD(0-0-1)
     Route: 048
  8. GENTAMICINE PANPHARMA [Suspect]
     Active Substance: GENTAMICIN
     Indication: PNEUMONIA
     Dosage: 180 MG, QD
     Route: 042
     Dates: start: 20191008, end: 20191008
  9. ACIDE FOLIQUE [Concomitant]
     Active Substance: FOLIC ACID
     Indication: ANAEMIA
     Dosage: 0.4 MG, QD (1-0-0)
     Route: 048
     Dates: start: 20190823
  10. PIPERACILIN/TAZOBAKTAM MYLAN [Suspect]
     Active Substance: PIPERACILLIN SODIUM\TAZOBACTAM SODIUM
     Indication: PNEUMONIA
     Dosage: 1 DF (TOTAL)
     Route: 042
     Dates: start: 20191008, end: 20191008
  11. METHYLPREDNISOLONE MYLAN [Suspect]
     Active Substance: METHYLPREDNISOLONE
     Indication: PREMEDICATION
     Dosage: 60 MG, CYCLIC
     Route: 042
     Dates: start: 20190916, end: 20191007
  12. LASILIX [Suspect]
     Active Substance: FUROSEMIDE
     Indication: CARDIAC FAILURE
     Dosage: 80 MG, QD
     Route: 042
     Dates: start: 20191008, end: 20191009
  13. MOPRAL [Concomitant]
     Active Substance: OMEPRAZOLE
     Indication: PROPHYLAXIS AGAINST GASTROINTESTINAL ULCER
     Dosage: 10 MG, QD(0-0-1)
     Route: 048
     Dates: end: 20191008
  14. RAMIPRIL MYLAN [Concomitant]
     Active Substance: RAMIPRIL
     Indication: HYPERTENSION
     Dosage: 2.5 MG, QD (1-0-0   )
     Route: 048
     Dates: end: 20191009
  15. CORTANCYL [Concomitant]
     Active Substance: PREDNISONE
     Indication: INTRACRANIAL PRESSURE INCREASED
     Dosage: 80 MG, QD(4-0-0)
     Route: 048
  16. SPASFON [Concomitant]
     Indication: PAIN
     Dosage: 1 DF, PRN (SI BESOIN (MAX 6/J))
     Route: 048
  17. CLOPIDOGREL [Concomitant]
     Active Substance: CLOPIDOGREL BISULFATE
     Indication: ARTERITIS
     Dosage: 75 MG, QD(1-0-0)
     Route: 048
  18. TEMESTA [Concomitant]
     Indication: ANXIETY
     Dosage: 10 MG, QD (1-1-1-1)
     Route: 048
  19. CARBOPLATIN ACCORD [Suspect]
     Active Substance: CARBOPLATIN
     Indication: LUNG ADENOCARCINOMA
     Dosage: 800 MG, CYCLIC
     Route: 042
     Dates: start: 20190916, end: 20191007
  20. CEFTRIAXONE. [Suspect]
     Active Substance: CEFTRIAXONE
     Indication: PNEUMONIA
     Dosage: 1 G (TOTAL)
     Route: 042
     Dates: start: 20191008, end: 20191008
  21. RISORDAN [Suspect]
     Active Substance: ISOSORBIDE
     Indication: CARDIAC FAILURE
     Dosage: 2 MG, QH
     Route: 042
     Dates: start: 20191008, end: 20191008
  22. DOLIPRANE [Concomitant]
     Active Substance: ACETAMINOPHEN
     Indication: PAIN
     Dosage: 4000 MG, QD (2-2-2-2)
     Route: 048
     Dates: start: 20190816
  23. IMOVANE [Concomitant]
     Active Substance: ZOPICLONE
     Indication: SLEEP DISORDER
     Dosage: 7.5 MG, QD
     Route: 048
     Dates: start: 20190918, end: 20191007
  24. GLUCOPHAGE [Concomitant]
     Active Substance: METFORMIN HYDROCHLORIDE
     Indication: TYPE 2 DIABETES MELLITUS
     Dosage: 3000 MG, QD (1-1-1)
     Route: 048
     Dates: end: 20191008
  25. NOVOMIX [Concomitant]
     Active Substance: INSULIN ASPART
     Indication: TYPE 2 DIABETES MELLITUS
     Dosage: 75 IU, QD(40 UI MATIN, 35 UI MIDI)
     Route: 058
     Dates: start: 20190823

REACTIONS (3)
  - Leukopenia [Recovering/Resolving]
  - Aplasia [Recovering/Resolving]
  - Agranulocytosis [Recovered/Resolved]

NARRATIVE: CASE EVENT DATE: 20191009
